FAERS Safety Report 8395905-3 (Version None)
Quarter: 2012Q2

REPORT INFORMATION
  Report Type: 
  Country: None (occurrence: None)
  Receive Date: 20120530
  Receipt Date: 20120525
  Transmission Date: 20120825
  Serious: Yes (Death, Other)
  Sender: FDA-Public Use
  Company Number: US-ROCHE-1063017

PATIENT
  Sex: Female

DRUGS (26)
  1. XELODA [Suspect]
     Dosage: FOR 14 DAYS , 1 WEEK OFF AND REPEAT CYCLE
     Route: 048
  2. CARDIZEM CD [Concomitant]
     Route: 048
  3. NARCO (UNK INGREDIENTS) [Concomitant]
     Indication: PAIN
     Dosage: 5 TO 325 MG
     Route: 048
  4. MIRALAX [Concomitant]
     Indication: CONSTIPATION
     Dosage: FORM PACK
     Route: 048
  5. TYLENOL [Concomitant]
     Dosage: AS NEEDED
     Route: 048
  6. LIPITOR [Concomitant]
     Route: 048
  7. MAGNESIUM GLUCONATE [Concomitant]
     Route: 048
  8. XELODA [Suspect]
     Indication: BREAST CANCER METASTATIC
     Route: 048
     Dates: start: 20111219, end: 20120322
  9. ZOLPIDEM TARTRATE [Suspect]
     Indication: PRODUCT USED FOR UNKNOWN INDICATION
     Route: 048
  10. POTASSIUM CHLORIDE [Concomitant]
     Route: 048
  11. CIPROFLOXACIN HCL [Concomitant]
     Route: 048
  12. CATAPRES [Concomitant]
     Route: 048
  13. NEXIUM [Concomitant]
     Route: 048
  14. MAGNESIUM CHLORIDE [Concomitant]
     Route: 048
  15. LOPRESSOR [Concomitant]
     Route: 048
  16. ALDACTONE [Concomitant]
     Route: 048
  17. CALCIUM [Concomitant]
     Route: 048
  18. CELEXA [Concomitant]
     Route: 048
  19. FIBERCON [Concomitant]
     Route: 048
  20. COUMADIN [Concomitant]
     Route: 048
  21. BENADRYL [Concomitant]
     Route: 048
  22. TYLENOL PM [Concomitant]
     Dosage: 25 TO 500 MG
     Route: 048
  23. FERROUS GLUCONATE [Concomitant]
     Route: 048
  24. LASIX [Concomitant]
     Route: 048
  25. MULTIVITAMIN (UNK INGREDIENTS) [Concomitant]
     Route: 048
  26. DIOVAN [Concomitant]
     Route: 048

REACTIONS (3)
  - DEATH [None]
  - DIZZINESS [None]
  - ASTHENIA [None]
